FAERS Safety Report 13965141 (Version 1)
Quarter: 2017Q3

REPORT INFORMATION
  Report Type: Spontaneous
  Country: GB (occurrence: GB)
  Receive Date: 20170913
  Receipt Date: 20170913
  Transmission Date: 20171128
  Serious: Yes (Other)
  Sender: FDA-Public Use
  Company Number: GB-TEVA-804771ACC

PATIENT
  Sex: Female
  Weight: 46.71 kg

DRUGS (2)
  1. SERTRALINE [Concomitant]
     Active Substance: SERTRALINE HYDROCHLORIDE
  2. NASOBEC AQUEOUS [Suspect]
     Active Substance: BECLOMETHASONE DIPROPIONATE
     Indication: NASAL VALVE COLLAPSE
     Dosage: 2 DOSAGE FORMS DAILY;
     Route: 045
     Dates: start: 20140620

REACTIONS (1)
  - Sensation of foreign body [Not Recovered/Not Resolved]

NARRATIVE: CASE EVENT DATE: 20170810
